FAERS Safety Report 18741559 (Version 1)
Quarter: 2021Q1

REPORT INFORMATION
  Report Type: Spontaneous
  Country: US (occurrence: US)
  Receive Date: 20210114
  Receipt Date: 20210114
  Transmission Date: 20210419
  Serious: No
  Sender: FDA-Public Use
  Company Number: US-ABBVIE-20K-163-3464963-00

PATIENT
  Age: 76 Year
  Sex: Female

DRUGS (1)
  1. DUOPA [Suspect]
     Active Substance: CARBIDOPA\LEVODOPA
     Indication: PARKINSON^S DISEASE
     Route: 050
     Dates: end: 2020

REACTIONS (7)
  - Stress [Unknown]
  - Medical device site haemorrhage [Unknown]
  - Medical device site discharge [Unknown]
  - Stoma site discharge [Unknown]
  - Parkinson^s disease [Unknown]
  - Device connection issue [Unknown]
  - Device dislocation [Unknown]

NARRATIVE: CASE EVENT DATE: 202004
